FAERS Safety Report 4480432-6 (Version None)
Quarter: 2004Q4

REPORT INFORMATION
  Report Type: 
  Country: None (occurrence: None)
  Receive Date: 20041018
  Receipt Date: 20041011
  Transmission Date: 20050328
  Serious: Yes (Other)
  Sender: FDA-Public Use
  Company Number: 2004-09-0869

PATIENT
  Age: 47 Year
  Sex: Female
  Weight: 72.5755 kg

DRUGS (8)
  1. PEG-INTRON [Suspect]
     Indication: HEPATITIS C
     Dosage: 150 MCG QW SUBCUTANEOUS
     Route: 058
     Dates: start: 20031031, end: 20040924
  2. REBETOL [Suspect]
     Indication: HEPATITIS C
     Dosage: 1200 MG QD ORAL
     Route: 048
     Dates: start: 20031031, end: 20040401
  3. RIBASPHERE [Suspect]
     Indication: HEPATITIS C
     Dates: start: 20040401, end: 20040924
  4. NEUPOGEN [Concomitant]
  5. PROCRIT [Concomitant]
  6. PREVACID [Concomitant]
  7. NAPROXEN [Concomitant]
  8. XANAX [Concomitant]

REACTIONS (11)
  - APHONIA [None]
  - CONDITION AGGRAVATED [None]
  - DRY THROAT [None]
  - DYSKINESIA [None]
  - HOARSENESS [None]
  - HYPOTHYROIDISM [None]
  - LARYNGEAL DISORDER [None]
  - LARYNGEAL OEDEMA [None]
  - PHARYNGOLARYNGEAL PAIN [None]
  - TORTICOLLIS [None]
  - VOCAL CORD PARALYSIS [None]
